FAERS Safety Report 8480049-2 (Version None)
Quarter: 2012Q2

REPORT INFORMATION
  Report Type: 
  Country: None (occurrence: None)
  Receive Date: 20120629
  Receipt Date: 20120619
  Transmission Date: 20120825
  Serious: Yes (Hospitalization)
  Sender: FDA-Public Use
  Company Number: CA-BAXTER-2012BAX008373

PATIENT
  Sex: Male

DRUGS (3)
  1. DIANEAL [Suspect]
     Indication: PERITONEAL DIALYSIS
     Route: 033
     Dates: start: 20110921
  2. NUTRINEAL [Suspect]
     Indication: PERITONEAL DIALYSIS
     Route: 033
     Dates: start: 20120517
  3. DIANEAL [Suspect]
     Indication: PERITONEAL DIALYSIS
     Route: 033
     Dates: start: 20110921

REACTIONS (10)
  - ASTHENIA [None]
  - PNEUMONIA [None]
  - ABASIA [None]
  - NAUSEA [None]
  - CATHETER SITE HAEMORRHAGE [None]
  - CARDIAC DISORDER [None]
  - ENTEROCOCCAL INFECTION [None]
  - MALAISE [None]
  - VOMITING [None]
  - URINARY TRACT INFECTION [None]
